FAERS Safety Report 7499481-9 (Version None)
Quarter: 2011Q2

REPORT INFORMATION
  Report Type: 
  Country: None (occurrence: None)
  Receive Date: 20110524
  Receipt Date: 20110518
  Transmission Date: 20111010
  Serious: Yes (Death)
  Sender: FDA-Public Use
  Company Number: PHHY2011NL42633

PATIENT
  Sex: Male

DRUGS (2)
  1. ZOMETA [Suspect]
     Dosage: 4 MG/ 5ML
     Dates: start: 20110401
  2. ZOMETA [Suspect]
     Dosage: 4 MG/ 5ML
     Dates: start: 20110329

REACTIONS (1)
  - INTESTINAL PERFORATION [None]
